FAERS Safety Report 11128952 (Version 3)
Quarter: 2015Q2

REPORT INFORMATION
  Report Type: Spontaneous
  Country: US (occurrence: US)
  Receive Date: 20150521
  Receipt Date: 20150630
  Transmission Date: 20150821
  Serious: No
  Sender: FDA-Public Use
  Company Number: US-009507513-1505USA005191

PATIENT
  Age: 24 Year
  Sex: Female

DRUGS (1)
  1. RAGWITEK [Suspect]
     Active Substance: AMBROSIA ARTEMISIIFOLIA POLLEN
     Indication: SEASONAL ALLERGY
     Dosage: 12 AMB ONCE DAILY (STRENGHT: 12 AMB A1-U)
     Route: 060
     Dates: start: 20150506, end: 201505

REACTIONS (5)
  - Dyspepsia [Unknown]
  - Stomatitis [Recovering/Resolving]
  - Stomatitis [Unknown]
  - Oral disorder [Recovering/Resolving]
  - Throat tightness [Unknown]

NARRATIVE: CASE EVENT DATE: 201505
